FAERS Safety Report 7588976-5 (Version None)
Quarter: 2011Q3

REPORT INFORMATION
  Report Type: 
  Country: None (occurrence: None)
  Receive Date: 20110705
  Receipt Date: 20110627
  Transmission Date: 20111222
  Serious: Yes (Other)
  Sender: FDA-Public Use
  Company Number: PHHY2011GB51810

PATIENT
  Age: 52 Year
  Sex: Male

DRUGS (3)
  1. PREDNISOLONE [Suspect]
  2. CYCLOSPORINE [Suspect]
     Indication: RENAL TRANSPLANT
     Dosage: UNK
  3. MYCOPHENOLATE MEFETIL [Suspect]
     Indication: RENAL TRANSPLANT
     Dosage: 2 G, DAILY
     Dates: start: 20000401

REACTIONS (2)
  - BRONCHIECTASIS [None]
  - HYPOGAMMAGLOBULINAEMIA [None]
